FAERS Safety Report 9278226 (Version 1)
Quarter: 2013Q2

REPORT INFORMATION
  Report Type: Spontaneous
  Country: US (occurrence: None)
  Receive Date: 20130506
  Receipt Date: 20130506
  Transmission Date: 20140414
  Serious: Yes (Hospitalization)
  Sender: FDA-Public Use
  Company Number: None

PATIENT
  Age: 78 Year
  Sex: Female
  Weight: 46 kg

DRUGS (1)
  1. TEFLARO [Suspect]
     Indication: CELLULITIS
     Route: 042
     Dates: start: 20130101, end: 20130129

REACTIONS (6)
  - Fall [None]
  - Pubis fracture [None]
  - Pyrexia [None]
  - Encephalitis [None]
  - Viral infection [None]
  - Meningitis aseptic [None]
